FAERS Safety Report 12521096 (Version 1)
Quarter: 2016Q3

REPORT INFORMATION
  Report Type: Spontaneous
  Country: IN (occurrence: IN)
  Receive Date: 20160701
  Receipt Date: 20160701
  Transmission Date: 20161109
  Serious: Yes (Other)
  Sender: FDA-Public Use
  Company Number: IN-JNJFOC-20160626253

PATIENT

DRUGS (2)
  1. HUMAN CLOTTABLE PROTEIN/HUMAN THROMBIN [Suspect]
     Active Substance: FIBRINOGEN HUMAN\THROMBIN HUMAN
     Indication: TISSUE SEALING
     Route: 061
  2. ALL OTHER THERAPEUTIC PRODUCTS [Concomitant]
     Active Substance: UNSPECIFIED INGREDIENT
     Indication: TISSUE SEALING
     Route: 061

REACTIONS (9)
  - Iris injury [Unknown]
  - Posterior capsule opacification [Unknown]
  - Corneal oedema [Unknown]
  - Anterior chamber fibrin [Recovered/Resolved]
  - Choroidal detachment [Unknown]
  - Vitritis [Unknown]
  - Hyphaema [Unknown]
  - Ocular hypertension [Unknown]
  - Off label use [Unknown]
